FAERS Safety Report 24049957 (Version 1)
Quarter: 2024Q3

REPORT INFORMATION
  Report Type: Report from Study
  Country: JP (occurrence: JP)
  Receive Date: 20240704
  Receipt Date: 20240704
  Transmission Date: 20241016
  Serious: Yes (Hospitalization)
  Sender: INSMED
  Company Number: JP-INSMED, INC.-2023-04408-JP

PATIENT
  Age: 79 Year
  Sex: Male

DRUGS (4)
  1. ARIKAYCE [Suspect]
     Active Substance: AMIKACIN
     Indication: Mycobacterium avium complex infection
     Dosage: UNK, UNK
     Route: 055
     Dates: start: 20230930, end: 202404
  2. ARIKAYCE [Suspect]
     Active Substance: AMIKACIN
     Dosage: UNK UNK, UNK
     Route: 055
     Dates: start: 2024, end: 20240623
  3. AMIKACIN [Concomitant]
     Active Substance: AMIKACIN
     Indication: Product used for unknown indication
     Dosage: UNK, UNK
     Route: 041
     Dates: start: 2024, end: 20240623
  4. AMIKACIN [Concomitant]
     Active Substance: AMIKACIN
     Dosage: UNK, TIW
     Route: 041
     Dates: start: 202406

REACTIONS (10)
  - Hospitalisation [Unknown]
  - Oral mucosal roughening [Recovered/Resolved]
  - Accidental underdose [Unknown]
  - Drug ineffective [Unknown]
  - Product preparation error [Unknown]
  - Incorrect product administration duration [Unknown]
  - Device maintenance issue [Unknown]
  - Wrong technique in device usage process [Unknown]
  - Therapy interrupted [Unknown]
  - Device delivery system issue [Unknown]

NARRATIVE: CASE EVENT DATE: 20230101
